FAERS Safety Report 19362783 (Version 2)
Quarter: 2021Q2

REPORT INFORMATION
  Report Type: Spontaneous
  Country: CH (occurrence: CH)
  Receive Date: 20210602
  Receipt Date: 20210622
  Transmission Date: 20210717
  Serious: Yes (Death, Other)
  Sender: FDA-Public Use
  Company Number: CH-BAYER-2021-150727

PATIENT
  Age: 76 Year
  Sex: Female

DRUGS (1)
  1. VITRAKVI [Suspect]
     Active Substance: LAROTRECTINIB
     Indication: ENDOMETRIAL CANCER
     Dosage: UNK
     Dates: start: 20210224, end: 20210506

REACTIONS (2)
  - Endometrial cancer [Fatal]
  - Fatigue [None]

NARRATIVE: CASE EVENT DATE: 20210430
